FAERS Safety Report 11309065 (Version 2)
Quarter: 2015Q3

REPORT INFORMATION
  Report Type: Spontaneous
  Country: FR (occurrence: FR)
  Receive Date: 20150724
  Receipt Date: 20150803
  Transmission Date: 20151125
  Serious: Yes (Hospitalization)
  Sender: FDA-Public Use
  Company Number: FR-TEVA-580421ISR

PATIENT
  Age: 63 Year
  Sex: Male
  Weight: 96 kg

DRUGS (7)
  1. CYTARABINE SANDOZ 100 MG/ML [Suspect]
     Active Substance: CYTARABINE
     Indication: MANTLE CELL LYMPHOMA STAGE II
     Dosage: 400 MG/M2 DAILY; D3 D6
     Route: 042
     Dates: start: 20150201, end: 20150203
  2. ALKERAN [Suspect]
     Active Substance: MELPHALAN
     Indication: MANTLE CELL LYMPHOMA STAGE II
     Dosage: 140 MG/M2 DAILY; D2,LYOPHILIZATE AND SOLUTION FOR PARENTERAL USE
     Route: 042
     Dates: start: 20150204, end: 20150204
  3. LEVACT 2.5 MG/ML [Suspect]
     Active Substance: BENDAMUSTINE HYDROCHLORIDE
     Indication: MANTLE CELL LYMPHOMA STAGE II
     Dosage: 150 MG/M2 DAILY; D7 D8
     Route: 042
     Dates: start: 20150129, end: 20150130
  4. ETOPOSIDE TEVA [Suspect]
     Active Substance: ETOPOSIDE
     Indication: MANTLE CELL LYMPHOMA STAGE II
     Dosage: 200 MG/M2 DAILY; D3 D6
     Route: 042
     Dates: start: 20150201, end: 20150203
  5. CORTICOSTEROIDS (NOS) [Concomitant]
  6. ZOPHREN [Concomitant]
     Active Substance: ONDANSETRON
     Indication: PROPHYLAXIS OF NAUSEA AND VOMITING
  7. EMEND [Concomitant]
     Active Substance: APREPITANT
     Indication: PROPHYLAXIS OF NAUSEA AND VOMITING

REACTIONS (3)
  - Mucosal inflammation [Recovered/Resolved]
  - Febrile bone marrow aplasia [Recovered/Resolved]
  - Diarrhoea [Recovered/Resolved]

NARRATIVE: CASE EVENT DATE: 20150209
